FAERS Safety Report 24282006 (Version 1)
Quarter: 2024Q3

REPORT INFORMATION
  Report Type: Spontaneous
  Country: CN (occurrence: CN)
  Receive Date: 20240904
  Receipt Date: 20240904
  Transmission Date: 20241017
  Serious: Yes (Hospitalization)
  Sender: PFIZER
  Company Number: CN-PFIZER INC-PV202400114949

PATIENT
  Age: 70 Year
  Sex: Female
  Weight: 87.5 kg

DRUGS (6)
  1. ZYVOX [Suspect]
     Active Substance: LINEZOLID
     Indication: Hepatic cirrhosis
     Dosage: 0.6 G, 1X/DAY
     Route: 041
     Dates: start: 20240809, end: 20240816
  2. ZYVOX [Suspect]
     Active Substance: LINEZOLID
     Indication: Oesophageal varices haemorrhage
  3. ZYVOX [Suspect]
     Active Substance: LINEZOLID
     Indication: Anti-infective therapy
  4. PIPERACILLIN SODIUM\TAZOBACTAM SODIUM [Suspect]
     Active Substance: PIPERACILLIN SODIUM\TAZOBACTAM SODIUM
     Indication: Hepatic cirrhosis
     Dosage: 4.5 G, 3X/DAY
     Route: 041
     Dates: start: 20240806, end: 20240816
  5. PIPERACILLIN SODIUM\TAZOBACTAM SODIUM [Suspect]
     Active Substance: PIPERACILLIN SODIUM\TAZOBACTAM SODIUM
     Indication: Oesophageal varices haemorrhage
  6. PIPERACILLIN SODIUM\TAZOBACTAM SODIUM [Suspect]
     Active Substance: PIPERACILLIN SODIUM\TAZOBACTAM SODIUM
     Indication: Anti-infective therapy

REACTIONS (2)
  - Pyrexia [Recovering/Resolving]
  - White blood cell count decreased [Recovering/Resolving]

NARRATIVE: CASE EVENT DATE: 20240815
